FAERS Safety Report 6592629-X (Version None)
Quarter: 2010Q1

REPORT INFORMATION
  Report Type: 
  Country: None (occurrence: None)
  Receive Date: 20100222
  Receipt Date: 20100208
  Transmission Date: 20100710
  Serious: Yes (Other)
  Sender: FDA-Public Use
  Company Number: DE-RANBAXY-2010RR-31011

PATIENT
  Age: 68 Year
  Sex: Male

DRUGS (2)
  1. MIDAZOLAM HCL [Suspect]
     Indication: PREMEDICATION
     Dosage: 2.5 MG, UNK
     Route: 042
     Dates: start: 20090128
  2. MEPERIDINE HCL [Concomitant]
     Dosage: 25 MG, UNK
     Route: 042
     Dates: start: 20100128

REACTIONS (6)
  - CARDIAC ENZYMES INCREASED [None]
  - CHEST DISCOMFORT [None]
  - HYPERHIDROSIS [None]
  - HYPERTENSIVE CRISIS [None]
  - PRODUCT QUALITY ISSUE [None]
  - TACHYCARDIA [None]
